FAERS Safety Report 5699865-5 (Version None)
Quarter: 2008Q2

REPORT INFORMATION
  Report Type: 
  Country: None (occurrence: None)
  Receive Date: 20080410
  Receipt Date: 20080401
  Transmission Date: 20081010
  Serious: Yes (Other)
  Sender: FDA-Public Use
  Company Number: US-BAYER-200811412NA

PATIENT
  Sex: Female

DRUGS (10)
  1. AVELOX [Suspect]
     Indication: SINUSITIS
     Route: 048
  2. FOSAMAX [Concomitant]
  3. AVAPRO [Concomitant]
  4. JANUMET [Concomitant]
  5. PRAVACHOL [Concomitant]
  6. NEXIUM [Concomitant]
  7. TESSALON [Concomitant]
  8. MUCINEX [Concomitant]
  9. NASACORT [Concomitant]
  10. FLORA-Q (NOS) [Concomitant]

REACTIONS (2)
  - CLOSTRIDIUM DIFFICILE COLITIS [None]
  - DIARRHOEA [None]
